FAERS Safety Report 8174675-8 (Version None)
Quarter: 2012Q1

REPORT INFORMATION
  Report Type: 
  Country: None (occurrence: None)
  Receive Date: 20120229
  Receipt Date: 20120223
  Transmission Date: 20120608
  Serious: Yes (Hospitalization)
  Sender: FDA-Public Use
  Company Number: US-GLAXOSMITHKLINE-A0886349A

PATIENT
  Age: 46 Year
  Sex: Female

DRUGS (1)
  1. AVANDIA [Suspect]
     Indication: DIABETES MELLITUS
     Dosage: 8MG TWICE PER DAY
     Route: 048
     Dates: start: 20020601, end: 20090901

REACTIONS (13)
  - ANGIOPLASTY [None]
  - STENT PLACEMENT [None]
  - CORONARY ARTERY DISEASE [None]
  - ANGINA PECTORIS [None]
  - HEART RATE ABNORMAL [None]
  - ASTHMA [None]
  - MYOCARDIAL INFARCTION [None]
  - DIABETES MELLITUS INADEQUATE CONTROL [None]
  - UPPER RESPIRATORY TRACT INFECTION [None]
  - CEREBROVASCULAR ACCIDENT [None]
  - CARDIAC FAILURE CONGESTIVE [None]
  - BLOOD PRESSURE INADEQUATELY CONTROLLED [None]
  - TREATMENT NONCOMPLIANCE [None]
